FAERS Safety Report 12715571 (Version 2)
Quarter: 2016Q3

REPORT INFORMATION
  Report Type: Spontaneous
  Country: US (occurrence: US)
  Receive Date: 20160906
  Receipt Date: 20160919
  Transmission Date: 20161109
  Serious: Yes (Other)
  Sender: FDA-Public Use
  Company Number: US-ACCORD-043725

PATIENT
  Age: 78 Year
  Sex: Female

DRUGS (2)
  1. METHOTREXATE. [Suspect]
     Active Substance: METHOTREXATE
     Indication: MANTLE CELL LYMPHOMA
     Dosage: DOSE: 400 UG/0.1ML, RECEIVED INTRAVITERAL 10 INJECTION IN LEFT EYE AND 08 WEEKLY IN RIGHT EYE.
     Route: 047
  2. IBRUTINIB [Concomitant]
     Active Substance: IBRUTINIB
     Indication: MANTLE CELL LYMPHOMA
     Dosage: INITIALLY STARTED SYSTEMIC 140 MG INITIALLY, THEN GRADUALLY INCREASED 420 MG DAILY.

REACTIONS (1)
  - Keratopathy [Recovered/Resolved]
